FAERS Safety Report 8924405 (Version 1)
Quarter: 2012Q4

REPORT INFORMATION
  Report Type: Spontaneous
  Country: US (occurrence: None)
  Receive Date: 20121116
  Receipt Date: 20121116
  Transmission Date: 20130627
  Serious: Yes (Hospitalization)
  Sender: FDA-Public Use
  Company Number: 2012-1154

PATIENT
  Age: 49 Year
  Weight: 86.5 kg

DRUGS (4)
  1. CARFILZOMIB [Suspect]
     Indication: MULTIPLE MYELOMA
     Dosage: (Day 1, 2, 8, 9, 15, 16)
     Route: 042
     Dates: start: 20120424
  2. LENALIDOMIDE [Suspect]
     Dosage: 20 mg, day 1 to 21, oral
     Dates: start: 20120424
  3. DEXAMETHASONE [Suspect]
  4. PAMIDRONATE [Concomitant]

REACTIONS (4)
  - Influenza like illness [None]
  - Dysarthria [None]
  - Blood creatinine increased [None]
  - Dehydration [None]
